FAERS Safety Report 5826136-6 (Version None)
Quarter: 2008Q3

REPORT INFORMATION
  Report Type: 
  Country: None (occurrence: None)
  Receive Date: 20080729
  Receipt Date: 20080717
  Transmission Date: 20090109
  Serious: Yes (Other)
  Sender: FDA-Public Use
  Company Number: NL-ELI_LILLY_AND_COMPANY-NL200807003885

PATIENT
  Sex: Female

DRUGS (1)
  1. CYMBALTA [Suspect]
     Dosage: UNK, UNKNOWN
     Route: 065

REACTIONS (5)
  - ANOREXIA [None]
  - CRYING [None]
  - SUICIDAL IDEATION [None]
  - WEIGHT DECREASED [None]
  - WITHDRAWAL SYNDROME [None]
